FAERS Safety Report 13390212 (Version 1)
Quarter: 2017Q1

REPORT INFORMATION
  Report Type: Spontaneous
  Country: US (occurrence: US)
  Receive Date: 20170330
  Receipt Date: 20170330
  Transmission Date: 20170429
  Serious: No
  Sender: FDA-Public Use
  Company Number: None

PATIENT
  Age: 70 Year
  Sex: Female
  Weight: 68.04 kg

DRUGS (2)
  1. NAPROXEN 375MG TABLET [Suspect]
     Active Substance: NAPROXEN
     Indication: POSTOPERATIVE CARE
     Dosage: ?          QUANTITY:/ MISTER 137 MWWI??TWICE;?
     Route: 048
  2. PANTOPRAZOLE SOD DR [Concomitant]

REACTIONS (2)
  - Movement disorder [None]
  - Pain [None]

NARRATIVE: CASE EVENT DATE: 20161103
